FAERS Safety Report 10739822 (Version 1)
Quarter: 2015Q1

REPORT INFORMATION
  Report Type: Spontaneous
  Country: US (occurrence: US)
  Receive Date: 20150127
  Receipt Date: 20150127
  Transmission Date: 20150721
  Serious: Yes (Hospitalization)
  Sender: FDA-Public Use
  Company Number: US-JNJFOC-20150111401

PATIENT
  Age: 27 Year
  Sex: Female

DRUGS (2)
  1. TYLENOL [Suspect]
     Active Substance: ACETAMINOPHEN
     Indication: MIGRAINE
     Route: 048
     Dates: start: 201006, end: 201006
  2. TYLENOL [Suspect]
     Active Substance: ACETAMINOPHEN
     Route: 048

REACTIONS (5)
  - Transaminases increased [Unknown]
  - International normalised ratio increased [Unknown]
  - Nervousness [Unknown]
  - Overdose [Unknown]
  - Panic disorder [Unknown]

NARRATIVE: CASE EVENT DATE: 201006
